FAERS Safety Report 11185199 (Version 1)
Quarter: 2015Q2

REPORT INFORMATION
  Report Type: Spontaneous
  Country: US (occurrence: None)
  Receive Date: 20150611
  Receipt Date: 20150611
  Transmission Date: 20150821
  Serious: Yes (Disabling)
  Sender: FDA-Public Use
  Company Number: None

PATIENT
  Age: 38 Year
  Sex: Female
  Weight: 104.33 kg

DRUGS (7)
  1. RAW THYROID [Concomitant]
  2. LEVOTHYROXINE [Concomitant]
     Active Substance: LEVOTHYROXINE
  3. MULTI VITAMIN [Concomitant]
     Active Substance: VITAMINS
  4. GADOLINIUM [Suspect]
     Active Substance: GADOLINIUM
  5. RAW ADRENAL [Concomitant]
  6. LABETALOL [Concomitant]
     Active Substance: LABETALOL\LABETALOL HYDROCHLORIDE
  7. VITAMIN D3 [Concomitant]
     Active Substance: CHOLECALCIFEROL

REACTIONS (5)
  - Vasodilatation [None]
  - Pain [None]
  - Angiopathy [None]
  - Injection site induration [None]
  - Feeling abnormal [None]

NARRATIVE: CASE EVENT DATE: 20150609
